FAERS Safety Report 8811864 (Version 1)
Quarter: 2012Q4

REPORT INFORMATION
  Report Type: 
  Country: US (occurrence: US)
  Receive Date: 20120927
  Receipt Date: 20120927
  Transmission Date: 20130627
  Serious: No
  Sender: FDA-Public Use
  Company Number: US-MUTUAL PHARMACEUTICAL COMPANY, INC.-SFTM20110015

PATIENT
  Age: 80 Year
  Sex: Female
  Weight: 59.02 kg

DRUGS (2)
  1. SULFAMETHOXAZOLE AND TRIMETHOPRIM DS [Suspect]
     Indication: POSTOPERATIVE INFECTION
     Route: 048
     Dates: start: 20111105, end: 20111108
  2. SYNTHROID [Concomitant]
     Indication: HYPOTHYROIDISM
     Route: 048

REACTIONS (3)
  - Neuralgia [Recovering/Resolving]
  - Arthralgia [Recovering/Resolving]
  - Myalgia [Recovering/Resolving]
